FAERS Safety Report 21445199 (Version 1)
Quarter: 2022Q4

REPORT INFORMATION
  Report Type: Spontaneous
  Country: US (occurrence: None)
  Receive Date: 20221010
  Receipt Date: 20221010
  Transmission Date: 20230113
  Serious: No
  Sender: FDA-Public Use
  Company Number: None

PATIENT
  Sex: Male

DRUGS (1)
  1. SKYRIZI [Suspect]
     Active Substance: RISANKIZUMAB-RZAA
     Indication: Psoriasis
     Dosage: OTHER FREQUENCY : EVERY12WKS;?
     Route: 058
     Dates: start: 202207

REACTIONS (4)
  - Device malfunction [None]
  - Device leakage [None]
  - Product dose omission issue [None]
  - Accidental exposure to product [None]
